FAERS Safety Report 13753141 (Version 2)
Quarter: 2017Q3

REPORT INFORMATION
  Report Type: Spontaneous
  Country: ES (occurrence: ES)
  Receive Date: 20170713
  Receipt Date: 20170714
  Transmission Date: 20171127
  Serious: Yes (Hospitalization, Other)
  Sender: FDA-Public Use
  Company Number: ES-PFIZER INC-2017301535

PATIENT
  Age: 49 Year
  Sex: Female

DRUGS (6)
  1. OMEPRAZOLE. [Suspect]
     Active Substance: OMEPRAZOLE
     Dosage: 20 MG, 1X/DAY
     Route: 048
     Dates: start: 20141124, end: 20170610
  2. TEGRETOL [Suspect]
     Active Substance: CARBAMAZEPINE
     Indication: TRIGEMINAL NEURALGIA
     Dosage: 200 MG, 3X/DAY
     Route: 048
     Dates: start: 20141124
  3. LYRICA [Suspect]
     Active Substance: PREGABALIN
     Indication: TRIGEMINAL NEURALGIA
     Dosage: 150 MG, 2X/DAY
     Route: 048
     Dates: start: 20141124
  4. SEPTRIN [Suspect]
     Active Substance: SULFAMETHOXAZOLE\TRIMETHOPRIM
     Indication: URINARY TRACT INFECTION
     Dosage: 1 DF, 1X/DAY (80 MG/400 MG)
     Route: 048
     Dates: start: 20170522
  5. NEURONTIN [Suspect]
     Active Substance: GABAPENTIN
     Indication: TRIGEMINAL NEURALGIA
     Dosage: 1200 MG, 3X/DAY
     Route: 048
     Dates: start: 20141124, end: 20170610
  6. TYSABRI [Concomitant]
     Active Substance: NATALIZUMAB
     Indication: SECONDARY PROGRESSIVE MULTIPLE SCLEROSIS
     Dosage: 300 MG, MONTHLY
     Route: 042
     Dates: start: 2008, end: 20170505

REACTIONS (2)
  - Anaemia megaloblastic [Unknown]
  - Cardiac failure [Unknown]

NARRATIVE: CASE EVENT DATE: 20170610
